FAERS Safety Report 10724260 (Version 2)
Quarter: 2015Q2

REPORT INFORMATION
  Report Type: Spontaneous
  Country: US (occurrence: US)
  Receive Date: 20150120
  Receipt Date: 20150427
  Transmission Date: 20150821
  Serious: Yes (Other)
  Sender: FDA-Public Use
  Company Number: US-BAYER-2015-007567

PATIENT
  Age: 43 Year
  Sex: Female

DRUGS (2)
  1. MIRENA [Suspect]
     Active Substance: LEVONORGESTREL
     Indication: CONTRACEPTION
     Dosage: 20 MCG/24HR, CONT
     Route: 015
     Dates: start: 20141024, end: 20150108
  2. MIRENA [Suspect]
     Active Substance: LEVONORGESTREL
     Indication: MENOMETRORRHAGIA

REACTIONS (2)
  - Genital haemorrhage [Recovered/Resolved]
  - Device expulsion [None]

NARRATIVE: CASE EVENT DATE: 20150108
